FAERS Safety Report 22042517 (Version 1)
Quarter: 2023Q1

REPORT INFORMATION
  Report Type: Spontaneous
  Country: DE (occurrence: DE)
  Receive Date: 20230228
  Receipt Date: 20230228
  Transmission Date: 20230417
  Serious: Yes (Other)
  Sender: FDA-Public Use
  Company Number: DE-SUN PHARMACEUTICAL INDUSTRIES LTD-2022RR-370899

PATIENT
  Age: 32 Year
  Sex: Male

DRUGS (7)
  1. TILDRAKIZUMAB [Suspect]
     Active Substance: TILDRAKIZUMAB
     Indication: Product used for unknown indication
     Dosage: 100 MG,1 IN 12 WK
     Route: 058
     Dates: start: 20220722, end: 20221111
  2. TILDRAKIZUMAB [Suspect]
     Active Substance: TILDRAKIZUMAB
     Dosage: 100 MILLIGRAM
     Route: 058
     Dates: start: 20200817
  3. TILDRAKIZUMAB [Suspect]
     Active Substance: TILDRAKIZUMAB
     Dosage: 100 UNK
     Route: 058
     Dates: start: 20200914
  4. TILDRAKIZUMAB [Suspect]
     Active Substance: TILDRAKIZUMAB
     Dosage: 100 UNK
     Route: 058
     Dates: start: 20201207
  5. TILDRAKIZUMAB [Suspect]
     Active Substance: TILDRAKIZUMAB
     Dosage: 100 UNK
     Route: 058
     Dates: start: 20210301
  6. TILDRAKIZUMAB [Suspect]
     Active Substance: TILDRAKIZUMAB
     Dosage: 100 UNK
     Route: 058
     Dates: start: 20210729
  7. PREDNISOLONE [Concomitant]
     Active Substance: PREDNISOLONE
     Indication: Product used for unknown indication
     Dosage: 60 MILLIGRAM, DAILY
     Route: 065
     Dates: start: 202211

REACTIONS (3)
  - Lymphadenopathy [Unknown]
  - Immunoglobulin G4 related disease [Unknown]
  - Product use issue [Recovering/Resolving]

NARRATIVE: CASE EVENT DATE: 20220901
